FAERS Safety Report 7044159-9 (Version None)
Quarter: 2010Q4

REPORT INFORMATION
  Report Type: 
  Country: None (occurrence: None)
  Receive Date: 20101013
  Receipt Date: 20100930
  Transmission Date: 20110411
  Serious: No
  Sender: FDA-Public Use
  Company Number: US-PFIZER INC-2010125362

PATIENT
  Sex: Female
  Weight: 80.726 kg

DRUGS (16)
  1. NICOTROL [Suspect]
     Indication: SMOKING CESSATION THERAPY
     Dosage: 10 MG, 1X/DAY
     Dates: start: 20100930
  2. PRISTIQ [Concomitant]
     Dosage: 50 MG, DAILY
  3. LYRICA [Concomitant]
     Dosage: 150 MG, DAILY
  4. TOPROL-XL [Concomitant]
     Dosage: 12.5 MG, 1X/DAY
  5. ISOSORBIDE [Concomitant]
     Dosage: 30 MG, DAILY
  6. ACIPHEX [Concomitant]
     Dosage: 20 MG, DAILY
  7. OXYBUTYNIN [Concomitant]
     Dosage: 5 MG, DAILY
  8. NORVASC [Concomitant]
     Dosage: 5 MG, DAILY
  9. FLEXERIL [Concomitant]
     Dosage: 10 MG, 2X/DAY
  10. MONTELUKAST [Concomitant]
     Dosage: 10 MG, DAILY
  11. LIPITOR [Concomitant]
     Dosage: 80 MG, DAILY
  12. WARFARIN [Concomitant]
     Dosage: 5 MG, 1 TABLET EVERY MONDAY AND FRIDAY, THEN 5 MG THE REST OF THE WEEK
  13. VENTOLIN [Concomitant]
     Dosage: UNK, 2 PUFFS IN THE MORNING AS NEEDED
  14. TRAZODONE [Concomitant]
     Dosage: 100 MG, DAILY
  15. HYDROCODONE [Concomitant]
     Indication: PAIN
     Dosage: UNK, AS NEEDED
  16. LIDODERM [Concomitant]
     Dosage: UNK, 3 PATCHES PER DAY

REACTIONS (6)
  - COUGH [None]
  - HYPOAESTHESIA [None]
  - HYPOAESTHESIA FACIAL [None]
  - NICOTINE DEPENDENCE [None]
  - STOMATITIS [None]
  - THROAT IRRITATION [None]
